FAERS Safety Report 15782785 (Version 1)
Quarter: 2019Q1

REPORT INFORMATION
  Report Type: Spontaneous
  Country: BR (occurrence: BR)
  Receive Date: 20190102
  Receipt Date: 20190102
  Transmission Date: 20190417
  Serious: Yes (Other)
  Sender: FDA-Public Use
  Company Number: BR-PFIZER INC-2018531646

PATIENT
  Age: 61 Year
  Sex: Female

DRUGS (1)
  1. XALATAN [Suspect]
     Active Substance: LATANOPROST
     Dosage: UNK
     Dates: start: 2011, end: 201811

REACTIONS (5)
  - Visual impairment [Not Recovered/Not Resolved]
  - Eye pain [Unknown]
  - Glaucoma [Unknown]
  - Pain [Unknown]
  - Malaise [Unknown]
